FAERS Safety Report 7642963-7 (Version None)
Quarter: 2011Q3

REPORT INFORMATION
  Report Type: 
  Country: None (occurrence: None)
  Receive Date: 20110728
  Receipt Date: 20110719
  Transmission Date: 20111222
  Serious: Yes (Hospitalization, Other)
  Sender: FDA-Public Use
  Company Number: US-MILLENNIUM PHARMACEUTICALS, INC.-2011-03087

PATIENT
  Sex: Female
  Weight: 61.224 kg

DRUGS (3)
  1. RITUXIMAB [Suspect]
     Indication: MANTLE CELL LYMPHOMA
     Dosage: 596 MG, CYCLIC
     Route: 042
     Dates: start: 20110125, end: 20110711
  2. VELCADE [Suspect]
     Indication: MANTLE CELL LYMPHOMA
     Dosage: 2.07 MG, CYCLIC
     Route: 042
     Dates: start: 20110125, end: 20110714
  3. LENALIDOMIDE [Suspect]
     Indication: MANTLE CELL LYMPHOMA
     Dosage: 5 MG, CYCLIC
     Route: 048
     Dates: start: 20110125, end: 20110717

REACTIONS (5)
  - COLITIS [None]
  - TACHYCARDIA [None]
  - DIARRHOEA [None]
  - HYPOTENSION [None]
  - DEHYDRATION [None]
